FAERS Safety Report 4557208-4 (Version None)
Quarter: 2005Q1

REPORT INFORMATION
  Report Type: 
  Country: None (occurrence: None)
  Receive Date: 20050118
  Receipt Date: 20050107
  Transmission Date: 20050727
  Serious: Yes (Other)
  Sender: FDA-Public Use
  Company Number: MEDI-0002717

PATIENT
  Age: 23 Month
  Sex: Male

DRUGS (1)
  1. SYNAGIS [Suspect]
     Indication: ANTIVIRAL PROPHYLAXIS
     Dosage: 1 IN 30 D INTRAMUSCULAR
     Route: 030
     Dates: start: 20021029, end: 20030316

REACTIONS (2)
  - INFANTILE ASTHMA [None]
  - PSYCHOMOTOR RETARDATION [None]
